FAERS Safety Report 16478947 (Version 1)
Quarter: 2019Q2

REPORT INFORMATION
  Report Type: Spontaneous
  Country: US (occurrence: US)
  Receive Date: 20190626
  Receipt Date: 20190626
  Transmission Date: 20190711
  Serious: No
  Sender: FDA-Public Use
  Company Number: US-BAYER-2019-118817

PATIENT
  Age: 92 Year
  Sex: Male
  Weight: 73 kg

DRUGS (4)
  1. MIRALAX [Suspect]
     Active Substance: POLYETHYLENE GLYCOL 3350
     Indication: GASTROINTESTINAL DISORDER
     Dosage: 17 G
     Route: 048
     Dates: start: 20190617, end: 20190619
  2. DULCOLAX (BISACODYL) [Concomitant]
     Active Substance: BISACODYL
  3. MILK OF MAGNESIA CHERRY [Suspect]
     Active Substance: MAGNESIUM HYDROXIDE
     Indication: GASTROINTESTINAL DISORDER
     Dosage: 30 ML
     Route: 048
  4. ONE A DAY MEN^S 50+ ADVANTAGE [Suspect]
     Active Substance: MINERALS\VITAMINS

REACTIONS (1)
  - Therapeutic product ineffective [Unknown]

NARRATIVE: CASE EVENT DATE: 20190620
